FAERS Safety Report 15154281 (Version 1)
Quarter: 2018Q3

REPORT INFORMATION
  Report Type: Spontaneous
  Country: GB (occurrence: GB)
  Receive Date: 20180717
  Receipt Date: 20180717
  Transmission Date: 20181010
  Serious: Yes (Other)
  Sender: FDA-Public Use
  Company Number: GB-JNJFOC-20180713246

PATIENT
  Age: 19 Year
  Sex: Female
  Weight: 50.8 kg

DRUGS (2)
  1. DAKTARIN GOLD [Suspect]
     Active Substance: KETOCONAZOLE
     Indication: TINEA PEDIS
     Route: 061
     Dates: start: 20180624, end: 20180626
  2. YASMIN [Concomitant]
     Active Substance: DROSPIRENONE\ETHINYL ESTRADIOL
     Indication: CONTRACEPTION
     Route: 048

REACTIONS (8)
  - Swelling [Unknown]
  - Pruritus [Unknown]
  - Skin burning sensation [Unknown]
  - Skin erosion [Unknown]
  - Hypersensitivity [Recovering/Resolving]
  - Skin weeping [Unknown]
  - Erythema [Unknown]
  - Blister [Unknown]

NARRATIVE: CASE EVENT DATE: 20180624
